FAERS Safety Report 5802054-4 (Version None)
Quarter: 2008Q3

REPORT INFORMATION
  Report Type: 
  Country: None (occurrence: None)
  Receive Date: 20080707
  Receipt Date: 20080625
  Transmission Date: 20090109
  Serious: Yes (Hospitalization)
  Sender: FDA-Public Use
  Company Number: FR-PFIZER INC-2008053699

PATIENT
  Sex: Male

DRUGS (4)
  1. ALDACTONE [Suspect]
     Route: 048
  2. GLIBENCLAMIDE TABLET [Suspect]
     Route: 048
  3. ZOCOR [Suspect]
     Route: 048
  4. AMARYL [Suspect]
     Route: 048

REACTIONS (1)
  - PEMPHIGOID [None]
